FAERS Safety Report 26028663 (Version 2)
Quarter: 2025Q4

REPORT INFORMATION
  Report Type: Spontaneous
  Country: EU (occurrence: EU)
  Receive Date: 20251111
  Receipt Date: 20251203
  Transmission Date: 20260119
  Serious: Yes (Hospitalization, Other)
  Sender: AZURITY PHARMACEUTICALS
  Company Number: EU-AZURITY PHARMACEUTICALS, INC.-AZR202510-003335

PATIENT
  Age: 70 Year
  Sex: Male

DRUGS (17)
  1. TRIPTORELIN [Suspect]
     Active Substance: TRIPTORELIN
     Indication: Hormone-dependent prostate cancer
     Dosage: 11.25 MILLIGRAM(S), IN 12 WEEK
     Route: 058
     Dates: start: 20230119
  2. TRIPTORELIN [Suspect]
     Active Substance: TRIPTORELIN
     Dosage: 240 MILLIGRAM, SINGLE/ONCE
     Route: 042
     Dates: start: 20230119
  3. LUTETIUM LU-177 VIPIVOTIDE TETRAXETAN [Suspect]
     Active Substance: LUTETIUM LU-177 VIPIVOTIDE TETRAXETAN
     Indication: Hormone-dependent prostate cancer
     Dosage: 7588.17 MEGABECQUEREL(S), IN 1 CYCLICAL, SINGLE (ONCE)
     Route: 042
     Dates: start: 20231116
  4. LUTETIUM LU-177 VIPIVOTIDE TETRAXETAN [Suspect]
     Active Substance: LUTETIUM LU-177 VIPIVOTIDE TETRAXETAN
     Dosage: 7548.84 MEGABECQUEREL(S), IN 1 CYCLICAL, SINGLE (ONCE)
     Route: 042
     Dates: start: 20231227
  5. APALUTAMIDE [Suspect]
     Active Substance: APALUTAMIDE
     Indication: Hormone-dependent prostate cancer
     Dosage: 240 MILLIGRAM, QD (ONCE)
     Route: 048
     Dates: start: 20221125
  6. APALUTAMIDE [Suspect]
     Active Substance: APALUTAMIDE
     Dosage: MOST RECENT DOSE
     Route: 065
     Dates: start: 20231026
  7. GALLIUM GA-68 GOZETOTIDE [Suspect]
     Active Substance: GALLIUM GA-68 GOZETOTIDE
     Indication: Hormone-dependent prostate cancer
     Dosage: 156.61 MEGABECQUEREL, ONCE/SINGLE
     Route: 042
     Dates: start: 20221117, end: 20221117
  8. Sedacid [Concomitant]
     Indication: Product used for unknown indication
     Dosage: UNK
     Route: 065
     Dates: start: 202209
  9. AMLODIPINE BESYLATE\OLMESARTAN MEDOXOMIL [Concomitant]
     Active Substance: AMLODIPINE BESYLATE\OLMESARTAN MEDOXOMIL
     Indication: Product used for unknown indication
     Dosage: UNK
     Route: 065
     Dates: start: 20221115
  10. Steovit Forte [Concomitant]
     Indication: Product used for unknown indication
     Dosage: UNK
     Route: 065
     Dates: start: 20230428
  11. CHOLECALCIFEROL [Concomitant]
     Active Substance: CHOLECALCIFEROL
     Indication: Product used for unknown indication
     Dosage: UNK
     Route: 065
     Dates: start: 20231002
  12. SODIUM CHLORIDE [Concomitant]
     Active Substance: SODIUM CHLORIDE
     Indication: Product used for unknown indication
     Dosage: UNK
     Route: 065
     Dates: start: 20231116
  13. ONDANSETRON [Concomitant]
     Active Substance: ONDANSETRON
     Indication: Product used for unknown indication
     Dosage: UNK
     Route: 065
     Dates: start: 20231116
  14. DICLOFENAC [Concomitant]
     Active Substance: DICLOFENAC
     Indication: Product used for unknown indication
     Dosage: UNK
     Route: 065
     Dates: start: 20231124
  15. MORPHINE SULFATE [Concomitant]
     Active Substance: MORPHINE SULFATE
     Indication: Product used for unknown indication
     Dosage: UNK
     Route: 065
     Dates: start: 20231124
  16. ACETAMINOPHEN [Concomitant]
     Active Substance: ACETAMINOPHEN
     Indication: Product used for unknown indication
     Dosage: UNK
     Route: 065
     Dates: start: 20231124
  17. TRAMADOL HYDROCHLORIDE [Concomitant]
     Active Substance: TRAMADOL HYDROCHLORIDE
     Indication: Product used for unknown indication
     Dosage: UNK
     Route: 065
     Dates: start: 20240109

REACTIONS (1)
  - Pathological fracture [Not Recovered/Not Resolved]

NARRATIVE: CASE EVENT DATE: 20240109
